FAERS Safety Report 5573368-0 (Version None)
Quarter: 2007Q4

REPORT INFORMATION
  Report Type: 
  Country: None (occurrence: None)
  Receive Date: 20071220
  Receipt Date: 20071220
  Transmission Date: 20080405
  Serious: Yes (Other)
  Sender: FDA-Public Use
  Company Number: None

PATIENT
  Age: 49 Year
  Sex: Female
  Weight: 113.3993 kg

DRUGS (2)
  1. METOPROLOL SUCCINATE [Suspect]
     Indication: MITRAL VALVE INCOMPETENCE
     Dosage: 150MG 1 TAB PO BID
     Route: 048
     Dates: start: 20071201
  2. METOPROLOL SUCCINATE [Suspect]
     Indication: PALPITATIONS
     Dosage: 150MG 1 TAB PO BID
     Route: 048
     Dates: start: 20071201

REACTIONS (1)
  - PALPITATIONS [None]
